FAERS Safety Report 25783798 (Version 1)
Quarter: 2025Q3

REPORT INFORMATION
  Report Type: Report from Study
  Country: US (occurrence: US)
  Receive Date: 20250910
  Receipt Date: 20250910
  Transmission Date: 20251020
  Serious: Yes (Other)
  Sender: ABBVIE
  Company Number: US-ABBVIE-6448243

PATIENT
  Age: 71 Year
  Sex: Female

DRUGS (1)
  1. QULIPTA [Suspect]
     Active Substance: ATOGEPANT
     Indication: Product used for unknown indication
     Route: 048
     Dates: start: 20220501

REACTIONS (4)
  - Catheter site pain [Unknown]
  - Confusional state [Recovered/Resolved]
  - Barrett^s oesophagus [Unknown]
  - Device dislocation [Unknown]

NARRATIVE: CASE EVENT DATE: 20250401
